FAERS Safety Report 6309162-2 (Version None)
Quarter: 2009Q3

REPORT INFORMATION
  Report Type: 
  Country: None (occurrence: None)
  Receive Date: 20090814
  Receipt Date: 20090521
  Transmission Date: 20100115
  Serious: No
  Sender: FDA-Public Use
  Company Number: A0785579A

PATIENT
  Age: 71 Year
  Sex: Male

DRUGS (7)
  1. COREG CR [Suspect]
     Indication: HYPERTENSION
     Dosage: 10MG PER DAY
     Route: 048
     Dates: start: 20071115
  2. PLAVIX [Concomitant]
  3. VYTORIN [Concomitant]
  4. ALTACE [Concomitant]
  5. NIASPAN [Concomitant]
  6. METFORMIN HCL [Concomitant]
  7. LYRICA [Concomitant]

REACTIONS (2)
  - THERAPEUTIC RESPONSE UNEXPECTED [None]
  - TOTAL CHOLESTEROL/HDL RATIO DECREASED [None]
